FAERS Safety Report 9781080 (Version 3)
Quarter: 2014Q2

REPORT INFORMATION
  Report Type: Spontaneous
  Country: JP (occurrence: JP)
  Receive Date: 20131224
  Receipt Date: 20140408
  Transmission Date: 20141212
  Serious: Yes (Hospitalization)
  Sender: FDA-Public Use
  Company Number: JP-UCBSA-106661

PATIENT
  Age: 57 Year
  Sex: Male

DRUGS (4)
  1. E KEPPRA [Suspect]
     Indication: EPILEPSY
     Route: 048
     Dates: start: 20120207, end: 20120208
  2. AMLODIN OD [Concomitant]
     Dosage: DAILY DOSE:5MG
     Route: 048
     Dates: start: 20110223, end: 20120519
  3. CO-DIO [Concomitant]
     Dosage: DAILY DOSE: 1DF
     Route: 048
     Dates: start: 20110223, end: 20120208
  4. TEGRETOL [Concomitant]
     Dosage: DAILY DOSE: 200MG
     Route: 048
     Dates: start: 20100206, end: 20120208

REACTIONS (1)
  - Interstitial lung disease [Recovering/Resolving]
